FAERS Safety Report 15237915 (Version 1)
Quarter: 2018Q3

REPORT INFORMATION
  Report Type: Spontaneous
  Country: US (occurrence: US)
  Receive Date: 20180803
  Receipt Date: 20180803
  Transmission Date: 20181010
  Serious: No
  Sender: FDA-Public Use
  Company Number: US-009507513-1807USA006728

PATIENT
  Age: 27 Year
  Sex: Female
  Weight: 67.13 kg

DRUGS (1)
  1. NEXPLANON [Suspect]
     Active Substance: ETONOGESTREL
     Indication: CONTRACEPTION
     Dosage: 1 IMPANT, UNK
     Route: 059
     Dates: start: 201506

REACTIONS (4)
  - Blood bilirubin increased [Not Recovered/Not Resolved]
  - Incorrect drug administration duration [Unknown]
  - Alcohol withdrawal syndrome [Not Recovered/Not Resolved]
  - Hepatomegaly [Not Recovered/Not Resolved]

NARRATIVE: CASE EVENT DATE: 201807
